FAERS Safety Report 15438784 (Version 1)
Quarter: 2018Q3

REPORT INFORMATION
  Report Type: Spontaneous
  Country: SK (occurrence: SK)
  Receive Date: 20180928
  Receipt Date: 20180928
  Transmission Date: 20181010
  Serious: Yes (Hospitalization, Other)
  Sender: FDA-Public Use
  Company Number: SK-BIOGEN-2018BI00636854

PATIENT
  Sex: Male

DRUGS (2)
  1. LAMOTRIGIN [Concomitant]
     Active Substance: LAMOTRIGINE
     Indication: PRODUCT USED FOR UNKNOWN INDICATION
     Route: 065
  2. TECFIDERA [Suspect]
     Active Substance: DIMETHYL FUMARATE
     Indication: RELAPSING-REMITTING MULTIPLE SCLEROSIS
     Route: 065
     Dates: start: 201710

REACTIONS (6)
  - Liver injury [Unknown]
  - Polycythaemia [Unknown]
  - Hypertension [Unknown]
  - Lipid metabolism disorder [Unknown]
  - Hepatic steatosis [Unknown]
  - Epilepsy [Unknown]
